FAERS Safety Report 25666418 (Version 1)
Quarter: 2025Q3

REPORT INFORMATION
  Report Type: Spontaneous
  Country: US (occurrence: None)
  Receive Date: 20250811
  Receipt Date: 20250811
  Transmission Date: 20251020
  Serious: No
  Sender: FDA-CTU
  Company Number: None

PATIENT
  Age: 32 Year
  Sex: Female
  Weight: 101.25 kg

DRUGS (5)
  1. CYANOCOBALAMIN\TIRZEPATIDE [Suspect]
     Active Substance: CYANOCOBALAMIN\TIRZEPATIDE
     Indication: Insulin resistance
     Dosage: OTHER QUANTITY : 6 INJECTION(S);?OTHER FREQUENCY : ONCE A WEEK;?OTHER ROUTE : INJECTION FAT;?
     Route: 050
     Dates: start: 20250801, end: 20250811
  2. TIRZEPATIDE [Concomitant]
     Active Substance: TIRZEPATIDE
  3. VYVANSE [Concomitant]
     Active Substance: LISDEXAMFETAMINE DIMESYLATE
  4. VITAMIN D [Concomitant]
     Active Substance: VITAMIN D NOS
  5. women^s once a day multi [Concomitant]

REACTIONS (4)
  - Product storage error [None]
  - Middle insomnia [None]
  - Abdominal discomfort [None]
  - Blood glucose decreased [None]

NARRATIVE: CASE EVENT DATE: 20250731
